FAERS Safety Report 20561809 (Version 3)
Quarter: 2022Q3

REPORT INFORMATION
  Report Type: Spontaneous
  Country: JP (occurrence: JP)
  Receive Date: 20220307
  Receipt Date: 20220906
  Transmission Date: 20221027
  Serious: Yes (Hospitalization, Other)
  Sender: FDA-Public Use
  Company Number: JP-BRISTOL-MYERS SQUIBB COMPANY-BMS-2022-030613

PATIENT
  Age: 6 Decade
  Sex: Male

DRUGS (4)
  1. YERVOY [Suspect]
     Active Substance: IPILIMUMAB
     Indication: Metastatic renal cell carcinoma
     Dosage: UNK, ONE TIME DOSE
     Route: 041
     Dates: start: 202106, end: 202106
  2. YERVOY [Suspect]
     Active Substance: IPILIMUMAB
     Dosage: UNK, ONE TIME DOSE
     Route: 041
     Dates: start: 202107, end: 202107
  3. OPDIVO [Suspect]
     Active Substance: NIVOLUMAB
     Indication: Metastatic renal cell carcinoma
     Dosage: UNK, ONE TIME DOSE
     Route: 041
     Dates: start: 202106, end: 202106
  4. OPDIVO [Suspect]
     Active Substance: NIVOLUMAB
     Dosage: UNK, ONE TIME DOSE
     Route: 041
     Dates: start: 202107, end: 202107

REACTIONS (6)
  - Erythema multiforme [Unknown]
  - Stevens-Johnson syndrome [Recovering/Resolving]
  - Type 1 diabetes mellitus [Unknown]
  - Diabetic ketoacidosis [Unknown]
  - Hypothyroidism [Unknown]
  - Liver disorder [Recovered/Resolved]
